FAERS Safety Report 7423522-8 (Version None)
Quarter: 2011Q2

REPORT INFORMATION
  Report Type: 
  Country: None (occurrence: None)
  Receive Date: 20110419
  Receipt Date: 20110412
  Transmission Date: 20111010
  Serious: Yes (Other)
  Sender: FDA-Public Use
  Company Number: PHHY2011FR31280

PATIENT
  Age: 62 Year
  Sex: Male

DRUGS (10)
  1. SINEMET [Suspect]
     Dosage: 100 MG, QID
  2. MODOPAR [Suspect]
     Indication: PARKINSON'S DISEASE
     Dosage: 3 DF, QD
     Dates: start: 19830501
  3. SELEGILINE HCL [Suspect]
     Indication: PARKINSON'S DISEASE
     Dosage: UNK
     Dates: start: 20030101
  4. PARLODEL [Suspect]
     Dosage: UNK
     Dates: start: 20030101
  5. STALEVO 100 [Suspect]
     Indication: PARKINSON'S DISEASE
     Dosage: 550 MG, DAILY
     Dates: start: 20070110, end: 20070301
  6. TRIVASTAL [Suspect]
     Indication: PARKINSON'S DISEASE
     Dosage: UNK
     Dates: start: 20030101
  7. AVLOCARDYL [Suspect]
     Indication: PARKINSON'S DISEASE
     Dosage: UNK
     Dates: start: 19830101
  8. SIFROL [Suspect]
     Indication: PARKINSON'S DISEASE
     Dosage: UNK
     Dates: end: 20070301
  9. PERGOLIDE MESYLATE [Suspect]
     Indication: PARKINSON'S DISEASE
     Dosage: UNK
     Dates: start: 20070110, end: 20070301
  10. SINEMET [Suspect]
     Indication: PARKINSON'S DISEASE
     Dosage: 1.5 MG, QID

REACTIONS (7)
  - MANIA [None]
  - COMPULSIVE SHOPPING [None]
  - SEXUAL DYSFUNCTION [None]
  - PSYCHOMOTOR HYPERACTIVITY [None]
  - DELIRIUM [None]
  - ABNORMAL BEHAVIOUR [None]
  - OVERDOSE [None]
